FAERS Safety Report 8060477-X (Version None)
Quarter: 2012Q1

REPORT INFORMATION
  Report Type: 
  Country: None (occurrence: None)
  Receive Date: 20120120
  Receipt Date: 20120117
  Transmission Date: 20120608
  Serious: Yes (Hospitalization, Disabling, Other)
  Sender: FDA-Public Use
  Company Number: FR-PFIZER INC-K201100754

PATIENT
  Age: 86 Year
  Sex: Female

DRUGS (7)
  1. ARICEPT [Suspect]
     Indication: DEMENTIA
     Dosage: UNK
     Route: 048
     Dates: start: 20100629, end: 20100713
  2. TYLENOL W/ CODEINE [Concomitant]
     Dosage: UNK
     Dates: start: 20100601
  3. ALTACE [Suspect]
     Indication: TRANSIENT ISCHAEMIC ATTACK
     Dosage: UNK
     Route: 048
     Dates: start: 20100601
  4. SINEMET [Concomitant]
     Dosage: UNK
  5. ASPIRIN [Concomitant]
     Dosage: UNK
  6. ROBAXIN [Concomitant]
     Dosage: UNK
     Dates: start: 20100601
  7. AGGRENOX [Suspect]
     Indication: TRANSIENT ISCHAEMIC ATTACK
     Dosage: UNK
     Dates: start: 20100601

REACTIONS (7)
  - CONVULSION [None]
  - ORTHOSTATIC HYPOTENSION [None]
  - DECREASED APPETITE [None]
  - GASTROOESOPHAGEAL REFLUX DISEASE [None]
  - DEMENTIA [None]
  - ALTERED STATE OF CONSCIOUSNESS [None]
  - SYNCOPE [None]
